FAERS Safety Report 6624165-6 (Version None)
Quarter: 2010Q1

REPORT INFORMATION
  Report Type: 
  Country: None (occurrence: None)
  Receive Date: 20100310
  Receipt Date: 20091028
  Transmission Date: 20100710
  Serious: No
  Sender: FDA-Public Use
  Company Number: US-BIOGENIDEC-2009BI034699

PATIENT
  Age: 22 Year
  Sex: Female

DRUGS (3)
  1. AVONEX [Suspect]
     Indication: MULTIPLE SCLEROSIS
     Route: 030
     Dates: start: 20090501
  2. BACLOFEN [Concomitant]
     Indication: MUSCLE SPASMS
     Dates: end: 20090601
  3. NEURONTIN [Concomitant]
     Indication: NEURALGIA

REACTIONS (3)
  - ALOPECIA [None]
  - MUSCLE SPASMS [None]
  - NEURALGIA [None]
